FAERS Safety Report 9749386 (Version 1)
Quarter: 2013Q4

REPORT INFORMATION
  Report Type: Spontaneous
  Country: CA (occurrence: CA)
  Receive Date: 20131212
  Receipt Date: 20131212
  Transmission Date: 20140711
  Serious: Yes (Life-Threatening)
  Sender: FDA-Public Use
  Company Number: CA-ROXANE LABORATORIES, INC.-2013-RO-01925RO

PATIENT
  Age: 75 Year
  Sex: Female

DRUGS (7)
  1. CLARITHROMYCIN [Suspect]
     Indication: PNEUMONIA
     Dosage: 1000 MG
  2. CLARITHROMYCIN [Concomitant]
     Indication: PNEUMONIA
     Dosage: 1 G
     Route: 042
  3. CEFTRIAXONE [Concomitant]
     Indication: PNEUMONIA
     Dosage: 2 G
     Route: 042
  4. METOPROLOL [Concomitant]
     Dosage: 50 MG
  5. LOSARTAN/HCT [Concomitant]
  6. CRESTOR [Concomitant]
     Dosage: 40 MG
  7. PLAVIX [Concomitant]
     Dosage: 75 MG

REACTIONS (4)
  - Torsade de pointes [Recovered/Resolved]
  - Electrocardiogram QT prolonged [Recovered/Resolved]
  - Ventricular fibrillation [Recovered/Resolved]
  - Cardiac arrest [Recovered/Resolved]
